FAERS Safety Report 5786079-3 (Version None)
Quarter: 2008Q2

REPORT INFORMATION
  Report Type: 
  Country: None (occurrence: None)
  Receive Date: 20080624
  Receipt Date: 20070529
  Transmission Date: 20081010
  Serious: No
  Sender: FDA-Public Use
  Company Number: US-ASTRAZENECA-2007UW13142

PATIENT
  Age: 3 Year
  Sex: Male

DRUGS (3)
  1. PULMICORT-100 [Suspect]
     Indication: ASTHMA
     Route: 055
     Dates: start: 20050101
  2. ALBUTEROL [Concomitant]
  3. SINGULAIR [Concomitant]

REACTIONS (2)
  - EYELID OEDEMA [None]
  - EYELID PTOSIS [None]
